FAERS Safety Report 6014466-7 (Version None)
Quarter: 2008Q4

REPORT INFORMATION
  Report Type: 
  Country: None (occurrence: None)
  Receive Date: 20081219
  Receipt Date: 20080703
  Transmission Date: 20090506
  Serious: No
  Sender: FDA-Public Use
  Company Number: A0736027A

PATIENT
  Age: 70 Year
  Sex: Male

DRUGS (10)
  1. AVODART [Suspect]
     Indication: BENIGN PROSTATIC HYPERPLASIA
     Dosage: 1CAP PER DAY
     Route: 048
     Dates: start: 20080101, end: 20080401
  2. NEXIUM [Suspect]
     Dosage: 1CAP PER DAY
     Route: 048
     Dates: start: 20080601, end: 20080601
  3. ACTOS [Concomitant]
  4. MINOXIDIL [Concomitant]
  5. GLUCOVANCE [Concomitant]
  6. LYRICA [Concomitant]
  7. MAXZIDE [Concomitant]
  8. QUINAPRIL [Concomitant]
  9. LOVAZA [Concomitant]
  10. NEXIUM [Concomitant]

REACTIONS (4)
  - BREAST PAIN [None]
  - BREAST SWELLING [None]
  - BREAST TENDERNESS [None]
  - NIGHTMARE [None]
